FAERS Safety Report 10865656 (Version 4)
Quarter: 2015Q2

REPORT INFORMATION
  Report Type: Spontaneous
  Country: US (occurrence: US)
  Receive Date: 20150224
  Receipt Date: 20150427
  Transmission Date: 20150821
  Serious: Yes (Other)
  Sender: FDA-Public Use
  Company Number: US-BRISTOL-MYERS SQUIBB COMPANY-BMS-2015-011235

PATIENT
  Sex: Female

DRUGS (3)
  1. KENALOG-10 [Suspect]
     Active Substance: TRIAMCINOLONE ACETONIDE
     Indication: INJURY
  2. KENALOG-10 [Suspect]
     Active Substance: TRIAMCINOLONE ACETONIDE
     Indication: ARTHRITIS
  3. KENALOG-10 [Suspect]
     Active Substance: TRIAMCINOLONE ACETONIDE
     Indication: SYNOVIAL CYST
     Dosage: 1
     Route: 065

REACTIONS (5)
  - Blood pressure increased [Recovered/Resolved]
  - Heart rate increased [Recovered/Resolved]
  - Hyperthyroidism [Unknown]
  - Anxiety [Recovered/Resolved]
  - Weight decreased [Recovering/Resolving]
